FAERS Safety Report 9248460 (Version 6)
Quarter: 2015Q4

REPORT INFORMATION
  Report Type: Spontaneous
  Country: US (occurrence: US)
  Receive Date: 20130423
  Receipt Date: 20151022
  Transmission Date: 20160305
  Serious: Yes (Other)
  Sender: FDA-Public Use
  Company Number: US-009507513-1304USA010944

PATIENT
  Sex: Male
  Weight: 90.25 kg

DRUGS (3)
  1. PROPECIA [Suspect]
     Active Substance: FINASTERIDE
     Indication: ANDROGENETIC ALOPECIA
     Dosage: 1 MG, QD
     Route: 048
     Dates: end: 20111108
  2. PROSCAR [Suspect]
     Active Substance: FINASTERIDE
     Indication: BENIGN PROSTATIC HYPERPLASIA
     Dosage: 5 MG, QD
     Route: 048
     Dates: start: 20101009, end: 20141016
  3. FINASTERIDE. [Suspect]
     Active Substance: FINASTERIDE
     Dosage: 5 MG, QD
     Route: 048
     Dates: start: 20110719, end: 20140312

REACTIONS (31)
  - Cognitive disorder [Not Recovered/Not Resolved]
  - Hormone level abnormal [Unknown]
  - Brain injury [Unknown]
  - Testicular atrophy [Unknown]
  - Calculus ureteric [Unknown]
  - Erectile dysfunction [Recovering/Resolving]
  - Suicidal ideation [Unknown]
  - Gout [Unknown]
  - Testicular swelling [Unknown]
  - Hypercholesterolaemia [Unknown]
  - Micturition disorder [Unknown]
  - Penis injury [Unknown]
  - Urinary retention [Recovered/Resolved]
  - Calculus ureteric [Unknown]
  - Genital hypoaesthesia [Unknown]
  - Sperm concentration decreased [Unknown]
  - Nocturia [Unknown]
  - Hypertension [Unknown]
  - Anxiety [Not Recovered/Not Resolved]
  - Flank pain [Unknown]
  - Stent placement [Unknown]
  - Testicular disorder [Unknown]
  - Prostatic disorder [Unknown]
  - Nephrolithiasis [Unknown]
  - Hydronephrosis [Unknown]
  - Ureteric calculus removal [Unknown]
  - Sexual dysfunction [Not Recovered/Not Resolved]
  - Depression [Not Recovered/Not Resolved]
  - Ureteric stenosis [Unknown]
  - Haematuria [Recovered/Resolved]
  - Loss of libido [Unknown]

NARRATIVE: CASE EVENT DATE: 199506
